FAERS Safety Report 7957740-7 (Version None)
Quarter: 2011Q4

REPORT INFORMATION
  Report Type: 
  Country: None (occurrence: None)
  Receive Date: 20111205
  Receipt Date: 20111125
  Transmission Date: 20120403
  Serious: Yes (Other)
  Sender: FDA-Public Use
  Company Number: PHHY2011JP103961

PATIENT
  Age: 2 Year
  Sex: Male

DRUGS (1)
  1. ZADITEN [Suspect]
     Dosage: UNK UKN, UNK
     Route: 048

REACTIONS (3)
  - LOSS OF CONSCIOUSNESS [None]
  - EPILEPSY [None]
  - GLOSSOPTOSIS [None]
